FAERS Safety Report 9522950 (Version 1)
Quarter: 2013Q3

REPORT INFORMATION
  Report Type: Spontaneous
  Country: CA (occurrence: None)
  Receive Date: 20130911
  Receipt Date: 20130911
  Transmission Date: 20140515
  Serious: Yes (Other)
  Sender: FDA-Public Use
  Company Number: AECAN201300112

PATIENT
  Age: 34 Year
  Sex: Female

DRUGS (5)
  1. GAMUNEX [Suspect]
     Indication: IMMUNODEFICIENCY
     Route: 042
     Dates: start: 20130227
  2. IGIVNEX [Suspect]
     Indication: IMMUNODEFICIENCY
     Route: 042
     Dates: start: 20130227
  3. BENADRYL [Concomitant]
  4. DEXAMETHASONE [Concomitant]
  5. PARACETAMOL [Concomitant]

REACTIONS (1)
  - Anaphylactoid reaction [None]
